FAERS Safety Report 19677706 (Version 1)
Quarter: 2021Q3

REPORT INFORMATION
  Report Type: Other
  Country: HR (occurrence: HR)
  Receive Date: 20210810
  Receipt Date: 20210810
  Transmission Date: 20211014
  Serious: Yes (Hospitalization)
  Sender: FDA-Public Use
  Company Number: HR-GE HEALTHCARE LIFE SCIENCES-2021CSU003895

PATIENT

DRUGS (2)
  1. OMNIPAQUE [Suspect]
     Active Substance: IOHEXOL
     Indication: PRODUCT USED FOR UNKNOWN INDICATION
  2. OMNIPAQUE [Suspect]
     Active Substance: IOHEXOL
     Indication: COMPUTERISED TOMOGRAM
     Dosage: 60 ML, SINGLE
     Route: 041
     Dates: start: 20210712, end: 20210712

REACTIONS (3)
  - Dysphagia [Unknown]
  - Angioedema [Unknown]
  - Throat irritation [Unknown]

NARRATIVE: CASE EVENT DATE: 20210712
